FAERS Safety Report 8003215-9 (Version None)
Quarter: 2011Q4

REPORT INFORMATION
  Report Type: 
  Country: None (occurrence: None)
  Receive Date: 20111222
  Receipt Date: 20111216
  Transmission Date: 20120403
  Serious: Yes (Hospitalization)
  Sender: FDA-Public Use
  Company Number: PHHY2011US27475

PATIENT
  Sex: Female

DRUGS (3)
  1. GILENYA [Suspect]
     Indication: MULTIPLE SCLEROSIS
     Dosage: 0.5 MG, QD
     Route: 048
     Dates: start: 20110202
  2. PRISTIQ [Concomitant]
     Dosage: UNK UKN, UNK
  3. NUVIGIL [Concomitant]
     Dosage: 1.5 DF, DAILY

REACTIONS (8)
  - URINARY TRACT INFECTION [None]
  - KIDNEY INFECTION [None]
  - DEPRESSION [None]
  - CRYING [None]
  - CONTUSION [None]
  - PYREXIA [None]
  - FATIGUE [None]
  - PAIN [None]
